FAERS Safety Report 4927291-2 (Version None)
Quarter: 2006Q1

REPORT INFORMATION
  Report Type: 
  Country: None (occurrence: None)
  Receive Date: 20060228
  Receipt Date: 20050518
  Transmission Date: 20060701
  Serious: No
  Sender: FDA-Public Use
  Company Number: US-GLAXOSMITHKLINE-A0559181A

PATIENT
  Age: 39 Year
  Sex: Female

DRUGS (2)
  1. IMITREX [Suspect]
     Indication: MIGRAINE
     Dosage: 6MG PER DAY
     Route: 058
     Dates: start: 20050507
  2. NO CONCURRENT MEDICATION [Concomitant]

REACTIONS (4)
  - BURNING SENSATION [None]
  - CHEST PAIN [None]
  - DYSPNOEA [None]
  - NECK PAIN [None]
